FAERS Safety Report 17740691 (Version 4)
Quarter: 2020Q2

REPORT INFORMATION
  Report Type: Spontaneous
  Country: PT (occurrence: PT)
  Receive Date: 20200504
  Receipt Date: 20200608
  Transmission Date: 20200714
  Serious: Yes (Death, Life-Threatening, Other)
  Sender: FDA-Public Use
  Company Number: PT-MYLANLABS-2020M1042835

PATIENT
  Age: 58 Year
  Sex: Female

DRUGS (10)
  1. DIAZEPAM. [Interacting]
     Active Substance: DIAZEPAM
     Indication: DEPRESSION
     Dosage: UNK
  2. TAMOXIFEN [Concomitant]
     Active Substance: TAMOXIFEN
     Indication: INVASIVE DUCTAL BREAST CARCINOMA
  3. TAMOXIFEN [Concomitant]
     Active Substance: TAMOXIFEN
     Indication: HER2 POSITIVE BREAST CANCER
     Dosage: UNK
     Dates: start: 200809
  4. TRASTUZUMAB. [Interacting]
     Active Substance: TRASTUZUMAB
     Indication: BREAST CANCER
  5. TIANEPTINE [Suspect]
     Active Substance: TIANEPTINE
     Indication: DEPRESSION
     Dosage: UNK
  6. ESTAZOLAM. [Interacting]
     Active Substance: ESTAZOLAM
     Indication: DEPRESSION
     Dosage: UNK
     Route: 065
  7. TRASTUZUMAB. [Interacting]
     Active Substance: TRASTUZUMAB
     Indication: INVASIVE DUCTAL BREAST CARCINOMA
     Dosage: UNK (LAST INFUSION ON 9 MARCH)
     Dates: start: 200810, end: 20090309
  8. PERINDOPRIL [Concomitant]
     Active Substance: PERINDOPRIL
     Indication: PRODUCT USED FOR UNKNOWN INDICATION
     Dosage: 5 MILLIGRAM, QD (5 MILLIGRAM, DAILY)
     Dates: start: 200903
  9. TIANEPTINE [Interacting]
     Active Substance: TIANEPTINE
     Indication: DEPRESSIVE SYMPTOM
  10. ATENOLOL. [Concomitant]
     Active Substance: ATENOLOL
     Indication: SUPRAVENTRICULAR EXTRASYSTOLES
     Dosage: UNK

REACTIONS (3)
  - Drug interaction [Fatal]
  - Sudden cardiac death [Fatal]
  - Arrhythmia [Fatal]

NARRATIVE: CASE EVENT DATE: 200903
